FAERS Safety Report 24546451 (Version 1)
Quarter: 2024Q4

REPORT INFORMATION
  Report Type: Spontaneous
  Country: US (occurrence: None)
  Receive Date: 20241023
  Receipt Date: 20241023
  Transmission Date: 20250114
  Serious: No
  Sender: Public
  Company Number: None

PATIENT
  Age: 43 Year
  Sex: Male
  Weight: 136 kg

DRUGS (1)
  1. IODIXANOL [Suspect]
     Active Substance: IODIXANOL
     Indication: Scan with contrast
     Dosage: OTHER FREQUENCY : ONCE;?
     Route: 042

REACTIONS (10)
  - Contrast media reaction [None]
  - Anaphylactic reaction [None]
  - Anxiety [None]
  - Conjunctival oedema [None]
  - Dyspnoea [None]
  - Eye pruritus [None]
  - Pruritus [None]
  - Urticaria [None]
  - Wheezing [None]
  - Chest discomfort [None]

NARRATIVE: CASE EVENT DATE: 20240729
